FAERS Safety Report 23754172 (Version 3)
Quarter: 2024Q3

REPORT INFORMATION
  Report Type: Spontaneous
  Country: US (occurrence: US)
  Receive Date: 20240417
  Receipt Date: 20240829
  Transmission Date: 20241016
  Serious: No
  Sender: LUNDBECK
  Company Number: US-LUNDBECK-DKLU3076249

PATIENT

DRUGS (4)
  1. VYEPTI [Suspect]
     Active Substance: EPTINEZUMAB\EPTINEZUMAB-JJMR
     Dosage: 5TH INFUSION
     Route: 041
     Dates: start: 20240214
  2. VYEPTI [Suspect]
     Active Substance: EPTINEZUMAB\EPTINEZUMAB-JJMR
     Dosage: 100 MILLIGRAM
     Route: 041
  3. VYEPTI [Suspect]
     Active Substance: EPTINEZUMAB\EPTINEZUMAB-JJMR
     Dosage: 300 MILLIGRAM
     Route: 041
  4. VYEPTI [Suspect]
     Active Substance: EPTINEZUMAB\EPTINEZUMAB-JJMR
     Indication: Migraine

REACTIONS (4)
  - Therapeutic response shortened [Not Recovered/Not Resolved]
  - Inappropriate schedule of product administration [Unknown]
  - Headache [Recovering/Resolving]
  - Drug ineffective [Unknown]
